FAERS Safety Report 8462668-2 (Version None)
Quarter: 2012Q2

REPORT INFORMATION
  Report Type: 
  Country: None (occurrence: None)
  Receive Date: 20120625
  Receipt Date: 20120625
  Transmission Date: 20120825
  Serious: Yes (Hospitalization, Other)
  Sender: FDA-Public Use
  Company Number: US-PFIZER INC-2010043698

PATIENT
  Age: 40 Year
  Sex: Male

DRUGS (9)
  1. CLONAZEPAM [Concomitant]
  2. ACETAMINOPHEN [Concomitant]
  3. PAROXETINE [Concomitant]
  4. CHLORDIAZEPOXIDE [Concomitant]
  5. DEPAKOTE [Concomitant]
  6. SERTRALINE [Concomitant]
  7. VERAPAMIL HCL [Suspect]
     Dosage: 240 MG,  90 TABS
  8. METOPROLOL [Concomitant]
  9. ZOLPIDEM [Concomitant]

REACTIONS (5)
  - SUICIDE ATTEMPT [None]
  - INTENTIONAL OVERDOSE [None]
  - HYPOTENSION [None]
  - ATRIOVENTRICULAR BLOCK COMPLETE [None]
  - PULMONARY OEDEMA [None]
